FAERS Safety Report 25011931 (Version 2)
Quarter: 2025Q1

REPORT INFORMATION
  Report Type: Spontaneous
  Country: US (occurrence: US)
  Receive Date: 20250226
  Receipt Date: 20250305
  Transmission Date: 20250408
  Serious: No
  Sender: AMGEN
  Company Number: US-AMGEN-USASP2025036699

PATIENT
  Sex: Female

DRUGS (9)
  1. OTEZLA [Suspect]
     Active Substance: APREMILAST
     Indication: Psoriasis
     Dosage: 30 MILLIGRAM, BID
     Route: 048
  2. VITAMIN B12 [Concomitant]
     Active Substance: CYANOCOBALAMIN
  3. CLOBETASOL PROPIONATE\CLOTRIMAZOLE [Concomitant]
     Active Substance: CLOBETASOL PROPIONATE\CLOTRIMAZOLE
  4. VITAMIN D [Concomitant]
     Active Substance: VITAMIN D NOS
  5. ASPIRIN [Concomitant]
     Active Substance: ASPIRIN
  6. ATIVAN [Concomitant]
     Active Substance: LORAZEPAM
  7. SYNTHROID [Concomitant]
     Active Substance: LEVOTHYROXINE SODIUM
  8. ZOLOFT [Concomitant]
     Active Substance: SERTRALINE HYDROCHLORIDE
  9. ANASTROZOLE [Concomitant]
     Active Substance: ANASTROZOLE

REACTIONS (2)
  - Therapeutic product effect decreased [Unknown]
  - Rash [Unknown]
